FAERS Safety Report 9188506 (Version 1)
Quarter: 2013Q1

REPORT INFORMATION
  Report Type: Spontaneous
  Country: US (occurrence: US)
  Receive Date: 20130325
  Receipt Date: 20130325
  Transmission Date: 20140127
  Serious: Yes (Hospitalization)
  Sender: FDA-Public Use
  Company Number: US-JNJFOC-20130311145

PATIENT
  Sex: Female

DRUGS (1)
  1. STELARA [Suspect]
     Indication: PSORIASIS
     Route: 058

REACTIONS (5)
  - Atrial fibrillation [Unknown]
  - Cognitive disorder [Unknown]
  - Loss of consciousness [Unknown]
  - Headache [Unknown]
  - Infection [Unknown]
